FAERS Safety Report 8584008-0 (Version None)
Quarter: 2012Q3

REPORT INFORMATION
  Report Type: 
  Country: None (occurrence: None)
  Receive Date: 20120810
  Receipt Date: 20120725
  Transmission Date: 20120928
  Serious: No
  Sender: FDA-Public Use
  Company Number: US-009507513-1207USA011464

PATIENT

DRUGS (14)
  1. PEGASYS [Suspect]
  2. FLOMAX [Concomitant]
  3. RIBASPHERE [Suspect]
  4. NEUPOGEN [Concomitant]
  5. CRESTOR [Concomitant]
  6. UROXATRAL [Concomitant]
  7. DOXYCYCLINE HCL [Concomitant]
  8. TYLENOL [Concomitant]
  9. LIDOCAINE [Concomitant]
  10. CIPROFLOXACIN HCL [Concomitant]
  11. VICTRELIS [Suspect]
     Indication: HEPATITIS C
     Dosage: 800 MG, TID
     Route: 048
     Dates: start: 20120501
  12. BENZONATATE [Concomitant]
  13. ADVIL [Concomitant]
  14. HYDROCORTISONE ACETATE (+) PRAMOXINE HYDROCHLORIDE [Concomitant]

REACTIONS (2)
  - PARANASAL SINUS HYPERSECRETION [None]
  - OROPHARYNGEAL PAIN [None]
